FAERS Safety Report 6440392-5 (Version None)
Quarter: 2009Q4

REPORT INFORMATION
  Report Type: 
  Country: None (occurrence: None)
  Receive Date: 20091113
  Receipt Date: 20091109
  Transmission Date: 20100525
  Serious: Yes (Death, Other)
  Sender: FDA-Public Use
  Company Number: PHHY2009SA48673

PATIENT
  Age: 35 Year
  Sex: Male

DRUGS (2)
  1. VOLTAREN [Suspect]
  2. DICLOFENAC [Concomitant]

REACTIONS (4)
  - ABDOMINAL PAIN UPPER [None]
  - ANURIA [None]
  - CARDIAC ARREST [None]
  - RENAL FAILURE ACUTE [None]
